FAERS Safety Report 7049137-1 (Version None)
Quarter: 2010Q4

REPORT INFORMATION
  Report Type: 
  Country: None (occurrence: None)
  Receive Date: 20101018
  Receipt Date: 20101006
  Transmission Date: 20110411
  Serious: Yes (Other)
  Sender: FDA-Public Use
  Company Number: US-SANOFI-AVENTIS-2010SA049408

PATIENT
  Age: 68 Year
  Sex: Male

DRUGS (9)
  1. MULTAQ [Suspect]
     Indication: ATRIAL FIBRILLATION
     Route: 048
     Dates: start: 20090901
  2. WARFARIN SODIUM [Concomitant]
  3. METOPROLOL SUCCINATE [Concomitant]
  4. GLIPIZIDE [Concomitant]
  5. DIGOXIN [Concomitant]
  6. LISINOPRIL [Concomitant]
  7. SIMVASTATIN [Concomitant]
  8. NIASPAN [Concomitant]
  9. VITAMIN B [Concomitant]

REACTIONS (6)
  - ATRIAL FIBRILLATION [None]
  - CONFUSIONAL STATE [None]
  - NEUROPATHY PERIPHERAL [None]
  - OEDEMA PERIPHERAL [None]
  - VISUAL ACUITY REDUCED [None]
  - WEIGHT DECREASED [None]
